FAERS Safety Report 11781894 (Version 1)
Quarter: 2015Q4

REPORT INFORMATION
  Report Type: Report from Study
  Country: US (occurrence: US)
  Receive Date: 20151126
  Receipt Date: 20151126
  Transmission Date: 20160305
  Serious: No
  Sender: FDA-Public Use
  Company Number: PHEH2015US024411

PATIENT
  Sex: Female

DRUGS (1)
  1. GLEEVEC [Suspect]
     Active Substance: IMATINIB MESYLATE
     Indication: PRODUCT USED FOR UNKNOWN INDICATION
     Dosage: 100 MG, QID (FOUR TIMES A DAY)
     Route: 048

REACTIONS (5)
  - Abdominal pain upper [Unknown]
  - Fall [Unknown]
  - Fatigue [Unknown]
  - Hypoacusis [Unknown]
  - Flatulence [Unknown]
